FAERS Safety Report 4626461-0 (Version None)
Quarter: 2005Q1

REPORT INFORMATION
  Report Type: 
  Country: None (occurrence: None)
  Receive Date: 20050330
  Receipt Date: 20050316
  Transmission Date: 20050727
  Serious: Yes (Hospitalization, Other)
  Sender: FDA-Public Use
  Company Number: USA041287051

PATIENT
  Age: 73 Year
  Sex: Female
  Weight: 71 kg

DRUGS (1)
  1. FORTEO [Suspect]
     Indication: OSTEOPOROSIS
     Dosage: 20 UG DAY
     Dates: start: 20031201

REACTIONS (4)
  - CLOSTRIDIUM COLITIS [None]
  - DEVICE MALFUNCTION [None]
  - JOINT ARTHROPLASTY [None]
  - PHARMACEUTICAL PRODUCT COMPLAINT [None]
